FAERS Safety Report 20619004 (Version 1)
Quarter: 2022Q1

REPORT INFORMATION
  Report Type: Spontaneous
  Country: CN (occurrence: CN)
  Receive Date: 20220322
  Receipt Date: 20220322
  Transmission Date: 20220424
  Serious: Yes (Other)
  Sender: FDA-Public Use
  Company Number: CN-BAXTER-2022BAX006045

PATIENT
  Age: 52 Year
  Sex: Female

DRUGS (14)
  1. CYCLOPHOSPHAMIDE [Suspect]
     Active Substance: CYCLOPHOSPHAMIDE
     Indication: Breast cancer female
     Dosage: 1ST CHEMOTHERAPY: ENDOXAN CTX + NS
     Route: 042
  2. CYCLOPHOSPHAMIDE [Suspect]
     Active Substance: CYCLOPHOSPHAMIDE
     Dosage: 2ND CHEMOTHERAPY: ENDOXAN CTX (800 MG) + NS (40 ML)
     Route: 042
     Dates: start: 20220105, end: 20220105
  3. CYCLOPHOSPHAMIDE [Suspect]
     Active Substance: CYCLOPHOSPHAMIDE
     Dosage: DOSE REINTRODUCED: ENDOXAN CTX + NS
     Route: 042
  4. SODIUM CHLORIDE [Suspect]
     Active Substance: SODIUM CHLORIDE
     Indication: Medication dilution
     Dosage: 1ST CHEMOTHERAPY: ENDOXAN CTX + NS
     Route: 042
  5. SODIUM CHLORIDE [Suspect]
     Active Substance: SODIUM CHLORIDE
     Dosage: 2ND CHEMOTHERAPY: ENDOXAN CTX (800 MG) + NS (40 ML)
     Route: 042
     Dates: start: 20220105, end: 20220105
  6. SODIUM CHLORIDE [Suspect]
     Active Substance: SODIUM CHLORIDE
     Dosage: 1ST CHEMOTHERAPY: PHARMORUBICIN + NS
     Route: 041
  7. SODIUM CHLORIDE [Suspect]
     Active Substance: SODIUM CHLORIDE
     Dosage: 2ND CHEMOTHERAPY: PHARMORUBICIN (120 MG) + NS (100 ML)
     Route: 041
     Dates: start: 20220105, end: 20220105
  8. SODIUM CHLORIDE [Suspect]
     Active Substance: SODIUM CHLORIDE
     Dosage: DOSE REINTRODUCED: ENDOXAN CTX + NS
     Route: 042
  9. SODIUM CHLORIDE [Suspect]
     Active Substance: SODIUM CHLORIDE
     Dosage: DOSE REINTRODUCED: PHARMORUBICIN + NS
     Route: 041
  10. EPIRUBICIN [Suspect]
     Active Substance: EPIRUBICIN
     Indication: Breast cancer female
     Dosage: FIRST CHEMOTHERAPY: PHARMORUBICIN + NS
     Route: 041
  11. EPIRUBICIN [Suspect]
     Active Substance: EPIRUBICIN
     Dosage: 2ND CHEMOTHERAPY: PHARMORUBICIN (120 MG) + NS (100 ML)
     Route: 041
     Dates: start: 20220105, end: 20220105
  12. EPIRUBICIN [Suspect]
     Active Substance: EPIRUBICIN
     Dosage: DOSE REINTRODUCED: PHARMORUBICIN + NS
     Route: 041
  13. GRANULOCYTE-MACROPHAGE COLONY-STIMULATING FACTOR [Concomitant]
     Active Substance: GRANULOCYTE-MACROPHAGE COLONY-STIMULATING FACTOR
     Indication: Product used for unknown indication
     Dosage: ON THE SECOND DAY
     Route: 058
     Dates: start: 202201
  14. Aiduo [Concomitant]
     Indication: Product used for unknown indication
     Dosage: ON THE THIRD DAY
     Route: 058
     Dates: start: 202201

REACTIONS (2)
  - White blood cell count decreased [Recovered/Resolved]
  - Agranulocytosis [Recovered/Resolved]

NARRATIVE: CASE EVENT DATE: 20220112
